FAERS Safety Report 8045577-2 (Version None)
Quarter: 2012Q1

REPORT INFORMATION
  Report Type: 
  Country: None (occurrence: None)
  Receive Date: 20120113
  Receipt Date: 20120105
  Transmission Date: 20120608
  Serious: Yes (Hospitalization, Other)
  Sender: FDA-Public Use
  Company Number: US-MERCK-1104USA03483

PATIENT
  Sex: Female

DRUGS (2)
  1. FOSAMAX [Suspect]
     Indication: OSTEOPOROSIS
     Route: 048
     Dates: start: 20011001, end: 20080901
  2. FOSAMAX [Suspect]
     Route: 048
     Dates: start: 20080101, end: 20080901

REACTIONS (9)
  - CEREBROVASCULAR ACCIDENT [None]
  - FEMUR FRACTURE [None]
  - VITAMIN D DEFICIENCY [None]
  - SKELETAL INJURY [None]
  - OSTEOMYELITIS [None]
  - EXOSTOSIS [None]
  - COMA [None]
  - OSTEONECROSIS OF JAW [None]
  - BLOOD CALCIUM DECREASED [None]
